FAERS Safety Report 7586132-8 (Version None)
Quarter: 2011Q3

REPORT INFORMATION
  Report Type: 
  Country: None (occurrence: None)
  Receive Date: 20110701
  Receipt Date: 20110603
  Transmission Date: 20111222
  Serious: Yes (Other)
  Sender: FDA-Public Use
  Company Number: US-AMGEN-USASP2011033129

PATIENT
  Age: 55 Year
  Sex: Female

DRUGS (4)
  1. ASPIRIN [Concomitant]
  2. SENSIPAR [Suspect]
     Indication: HYPERPARATHYROIDISM SECONDARY
     Dosage: 45 MG, BID
     Dates: start: 20100407
  3. SENSIPAR [Suspect]
     Dosage: 90 MG, QD
  4. SENSIPAR [Suspect]
     Dosage: 60 MG, QD

REACTIONS (8)
  - OESOPHAGEAL PAIN [None]
  - HEADACHE [None]
  - LETHARGY [None]
  - ERUCTATION [None]
  - BLOOD CALCIUM INCREASED [None]
  - GASTROINTESTINAL HAEMORRHAGE [None]
  - DIARRHOEA [None]
  - NAUSEA [None]
